FAERS Safety Report 6822372-0 (Version None)
Quarter: 2010Q3

REPORT INFORMATION
  Report Type: 
  Country: None (occurrence: None)
  Receive Date: 20100708
  Receipt Date: 20100624
  Transmission Date: 20110219
  Serious: Yes (Other)
  Sender: FDA-Public Use
  Company Number: PHEH2006US14280

PATIENT
  Sex: Female
  Weight: 78.005 kg

DRUGS (7)
  1. AREDIA [Suspect]
     Dosage: UNK
  2. ZOMETA [Suspect]
     Dosage: 4 MG
  3. ZOLOFT [Concomitant]
  4. NEULASTA [Concomitant]
  5. TAXOTERE [Concomitant]
     Dosage: 100
  6. NEURONTIN [Concomitant]
  7. DECADRON [Concomitant]
     Dosage: 4 MG, QID
     Route: 048

REACTIONS (13)
  - DECREASED INTEREST [None]
  - FLUID RETENTION [None]
  - GENERAL PHYSICAL HEALTH DETERIORATION [None]
  - HEPATIC STEATOSIS [None]
  - INJURY [None]
  - METASTASES TO CENTRAL NERVOUS SYSTEM [None]
  - OEDEMA [None]
  - OSTEONECROSIS OF JAW [None]
  - OSTEOSCLEROSIS [None]
  - PAIN [None]
  - PAIN IN JAW [None]
  - TOOTH FRACTURE [None]
  - WEIGHT INCREASED [None]
